FAERS Safety Report 8420108-3 (Version None)
Quarter: 2012Q2

REPORT INFORMATION
  Report Type: 
  Country: None (occurrence: None)
  Receive Date: 20120607
  Receipt Date: 20120531
  Transmission Date: 20120825
  Serious: Yes (Congenital Anomaly)
  Sender: FDA-Public Use
  Company Number: US-FRI-1000030967

PATIENT
  Sex: Female

DRUGS (1)
  1. LEXAPRO [Suspect]
     Route: 064

REACTIONS (1)
  - CRANIOSYNOSTOSIS [None]
